FAERS Safety Report 13991441 (Version 3)
Quarter: 2017Q4

REPORT INFORMATION
  Report Type: Spontaneous
  Country: CL (occurrence: CL)
  Receive Date: 20170920
  Receipt Date: 20171020
  Transmission Date: 20180321
  Serious: Yes (Death, Other)
  Sender: FDA-Public Use
  Company Number: CL-ELI_LILLY_AND_COMPANY-CL201709003124

PATIENT
  Age: 46 Year
  Sex: Female

DRUGS (3)
  1. TRAMADOL. [Concomitant]
     Active Substance: TRAMADOL
     Indication: PALLIATIVE CARE
     Dosage: UNK, UNKNOWN
     Route: 065
  2. PARACETAMOL [Concomitant]
     Active Substance: ACETAMINOPHEN
     Indication: PALLIATIVE CARE
     Dosage: UNK, UNKNOWN
     Route: 065
  3. CYRAMZA [Suspect]
     Active Substance: RAMUCIRUMAB
     Indication: PRODUCT USED FOR UNKNOWN INDICATION
     Dosage: UNK, UNKNOWN
     Route: 065

REACTIONS (5)
  - Hepatic haematoma [Unknown]
  - Malignant neoplasm progression [Unknown]
  - Hypertension [Recovered/Resolved]
  - Metastases to liver [Unknown]
  - Death [Fatal]

NARRATIVE: CASE EVENT DATE: 20170907
